FAERS Safety Report 25157286 (Version 1)
Quarter: 2025Q2

REPORT INFORMATION
  Report Type: Spontaneous
  Country: CN (occurrence: CN)
  Receive Date: 20250403
  Receipt Date: 20250403
  Transmission Date: 20250717
  Serious: Yes (Hospitalization, Other)
  Sender: ASTELLAS
  Company Number: CN-ASTELLAS-2025-AER-018121

PATIENT
  Age: 26 Year
  Sex: Female

DRUGS (6)
  1. TACROLIMUS [Suspect]
     Active Substance: TACROLIMUS
     Indication: Myasthenia gravis
     Dosage: TROUGH CONCENTRATION HAS CONSISTENTLY REMAINED WITHIN THE TARGET RANGE (2-9 NG/ML).
     Route: 065
  2. TACROLIMUS [Suspect]
     Active Substance: TACROLIMUS
     Dosage: REDUCED
     Route: 065
  3. TACROLIMUS [Suspect]
     Active Substance: TACROLIMUS
     Dosage: SUBSEQUENTLY REDUCED
     Route: 065
  4. TACROLIMUS [Suspect]
     Active Substance: TACROLIMUS
     Dosage: CONCENTRATION STABILIZED AT APPROXIMATELY 5 NG/ML
     Route: 065
  5. PREDNISONE ACETATE [Concomitant]
     Active Substance: PREDNISONE ACETATE
     Indication: Myasthenia gravis
     Route: 065
  6. PREDNISONE ACETATE [Concomitant]
     Active Substance: PREDNISONE ACETATE
     Route: 065

REACTIONS (7)
  - Nephropathy toxic [Recovering/Resolving]
  - Toxicity to various agents [Recovering/Resolving]
  - Infection [Recovering/Resolving]
  - Hyperglycaemia [Recovered/Resolved]
  - Hyperuricaemia [Recovering/Resolving]
  - Lymphopenia [Recovered/Resolved]
  - Off label use [Unknown]
